FAERS Safety Report 4637465-6 (Version None)
Quarter: 2005Q2

REPORT INFORMATION
  Report Type: 
  Country: None (occurrence: None)
  Receive Date: 20050418
  Receipt Date: 20050330
  Transmission Date: 20051028
  Serious: Yes (Other)
  Sender: FDA-Public Use
  Company Number: US-AMGEN-US123974

PATIENT
  Sex: Female
  Weight: 45.7 kg

DRUGS (5)
  1. ENBREL [Suspect]
     Indication: JUVENILE ARTHRITIS
     Route: 058
     Dates: start: 20040801, end: 20050101
  2. METHOTREXATE [Concomitant]
     Dates: start: 19970917
  3. FOLIC ACID [Concomitant]
     Dates: start: 19970917
  4. ADVAIR DISKUS 100/50 [Concomitant]
     Dates: start: 20020101
  5. PREDNISOLONE [Concomitant]
     Dates: start: 20050111, end: 20050120

REACTIONS (1)
  - PERIPHERAL SENSORY NEUROPATHY [None]
